FAERS Safety Report 9798717 (Version 1)
Quarter: 2014Q1

REPORT INFORMATION
  Report Type: Spontaneous
  Country: US (occurrence: US)
  Receive Date: 20140106
  Receipt Date: 20140106
  Transmission Date: 20141002
  Serious: No
  Sender: FDA-Public Use
  Company Number: US-GILEAD-2010-0029898

PATIENT
  Age: 33 Year
  Sex: Male
  Weight: 121.2 kg

DRUGS (20)
  1. LETAIRIS [Suspect]
     Indication: PULMONARY ARTERIAL HYPERTENSION
     Route: 048
     Dates: start: 20081113
  2. PEPCID [Concomitant]
  3. LASIX [Concomitant]
  4. GLUCOTROL [Concomitant]
  5. TRICOR [Concomitant]
  6. TOPROL XL [Concomitant]
  7. ALLOPURINOL [Concomitant]
  8. ZAROXOLYN [Concomitant]
  9. MICRO-K [Concomitant]
  10. OXYGEN [Concomitant]
  11. ALDACTONE [Concomitant]
  12. REVATIO [Concomitant]
  13. AMOXICILLIN [Concomitant]
  14. LANOXIN [Concomitant]
  15. IBUPROFEN [Concomitant]
  16. PLAVIX [Concomitant]
  17. VITAMIN B6 [Concomitant]
  18. MULTIVITAMIN [Concomitant]
  19. VITAMIN C [Concomitant]
  20. VITAMIN E [Concomitant]

REACTIONS (1)
  - Parosmia [Unknown]
